FAERS Safety Report 18108472 (Version 4)
Quarter: 2020Q4

REPORT INFORMATION
  Report Type: Other
  Country: GB (occurrence: GB)
  Receive Date: 20200804
  Receipt Date: 20201019
  Transmission Date: 20210113
  Serious: Yes (Hospitalization)
  Sender: FDA-Public Use
  Company Number: GB-ROCHE-2652311

PATIENT
  Sex: Male

DRUGS (1)
  1. RITUXIMAB. [Suspect]
     Active Substance: RITUXIMAB
     Indication: WALDENSTROM^S MACROGLOBULINAEMIA
     Dosage: MAINTENANCE THERAPY IN THE 3 MONTHS PRIOR TO SARS-COV-2 INFECTION
     Route: 065

REACTIONS (1)
  - COVID-19 [Recovered/Resolved]
